FAERS Safety Report 24151535 (Version 1)
Quarter: 2024Q3

REPORT INFORMATION
  Report Type: Spontaneous
  Country: AU (occurrence: AU)
  Receive Date: 20240730
  Receipt Date: 20240730
  Transmission Date: 20241017
  Serious: Yes (Disabling, Other)
  Sender: ACCORD
  Company Number: AU-MLMSERVICE-20240711-PI128640-00152-1

PATIENT
  Age: 59 Year
  Sex: Female

DRUGS (13)
  1. FLUOROURACIL [Suspect]
     Active Substance: FLUOROURACIL
     Indication: Metastases to liver
     Dosage: 8X2-WEEK CYCLES
     Dates: start: 202109, end: 202112
  2. OXALIPLATIN [Suspect]
     Active Substance: OXALIPLATIN
     Indication: Metastases to liver
     Dosage: 8X2-WEEK CYCLES
     Dates: start: 202109, end: 202112
  3. LEUCOVORIN [Suspect]
     Active Substance: LEUCOVORIN\LEUCOVORIN CALCIUM
     Indication: Rectal cancer stage IV
     Dosage: 8X2-WEEK CYCLES
     Dates: start: 202109, end: 202112
  4. BUPRENORPHINE [Concomitant]
     Active Substance: BUPRENORPHINE
     Indication: Trismus
     Route: 060
     Dates: start: 2021
  5. DEXAMETHASONE [Concomitant]
     Active Substance: DEXAMETHASONE
     Indication: Prophylaxis of nausea and vomiting
     Dates: start: 202108
  6. ACETAMINOPHEN\CODEINE PHOSPHATE [Concomitant]
     Active Substance: ACETAMINOPHEN\CODEINE PHOSPHATE
     Indication: Pain in jaw
     Dates: start: 2021
  7. DEXAMETHASONE [Concomitant]
     Active Substance: DEXAMETHASONE
     Indication: Steroid therapy
     Dates: start: 202108
  8. BUPRENORPHINE [Concomitant]
     Active Substance: BUPRENORPHINE
     Indication: Pain in jaw
     Route: 060
     Dates: start: 2021
  9. ACETAMINOPHEN\CODEINE PHOSPHATE [Concomitant]
     Active Substance: ACETAMINOPHEN\CODEINE PHOSPHATE
     Indication: Trismus
     Dates: start: 2021
  10. FLUOROURACIL [Suspect]
     Active Substance: FLUOROURACIL
     Indication: Rectal cancer stage IV
     Dosage: 8X2-WEEK CYCLES
     Dates: start: 202109, end: 202112
  11. OXALIPLATIN [Suspect]
     Active Substance: OXALIPLATIN
     Indication: Rectal cancer recurrent
     Dosage: 8X2-WEEK CYCLES
     Dates: start: 202109, end: 202112
  12. LEUCOVORIN [Suspect]
     Active Substance: LEUCOVORIN\LEUCOVORIN CALCIUM
     Indication: Metastases to liver
     Dosage: 8X2-WEEK CYCLES
     Dates: start: 202109, end: 202112
  13. OXALIPLATIN [Suspect]
     Active Substance: OXALIPLATIN
     Indication: Rectal cancer stage IV
     Dosage: 8X2-WEEK CYCLES
     Dates: start: 202109, end: 202112

REACTIONS (25)
  - Neutrophil count decreased [Unknown]
  - Abdominal pain [Recovering/Resolving]
  - Gastrointestinal pain [Recovering/Resolving]
  - Depressed mood [Recovering/Resolving]
  - Insomnia [Unknown]
  - Brain fog [Unknown]
  - Nausea [Recovering/Resolving]
  - Mental fatigue [Unknown]
  - Amnesia [Unknown]
  - Oropharyngeal pain [Unknown]
  - Emotional disorder [Recovering/Resolving]
  - Headache [Recovering/Resolving]
  - Constipation [Recovering/Resolving]
  - Feeling of body temperature change [Unknown]
  - Night sweats [Recovering/Resolving]
  - Platelet count decreased [Unknown]
  - Stomatitis [Recovering/Resolving]
  - Cognitive disorder [Unknown]
  - Pelvic pain [Recovering/Resolving]
  - Cold dysaesthesia [Unknown]
  - Neuropathy peripheral [Not Recovered/Not Resolved]
  - Fatigue [Unknown]
  - Pain in jaw [Recovering/Resolving]
  - Epistaxis [Unknown]
  - Trismus [Recovering/Resolving]

NARRATIVE: CASE EVENT DATE: 20210101
